FAERS Safety Report 11748651 (Version 3)
Quarter: 2016Q1

REPORT INFORMATION
  Report Type: Spontaneous
  Country: JP (occurrence: JP)
  Receive Date: 20151117
  Receipt Date: 20160204
  Transmission Date: 20160525
  Serious: Yes (Hospitalization, Other)
  Sender: FDA-Public Use
  Company Number: JP-MYLANLABS-2015M1039955

PATIENT

DRUGS (13)
  1. LEUPRORELIN [Suspect]
     Active Substance: LEUPROLIDE ACETATE
     Indication: ENDOMETRIAL STROMAL SARCOMA
     Route: 065
  2. GEMCITABINE [Suspect]
     Active Substance: GEMCITABINE\GEMCITABINE HYDROCHLORIDE
     Dosage: 800 MG/M2 ON DAYS 1 AND 8 EVERY 3 WEEKS FOR 6 CYCLES THEN EVERY 3 MONTHS FOR 6 CYCLES
     Route: 065
  3. PACLITAXEL. [Suspect]
     Active Substance: PACLITAXEL
     Indication: ENDOMETRIAL STROMAL SARCOMA
     Dosage: 170 MG/M2
     Route: 065
  4. DOCETAXEL. [Suspect]
     Active Substance: DOCETAXEL
     Indication: ENDOMETRIAL STROMAL SARCOMA
     Dosage: ??
     Route: 065
  5. GEMCITABINE [Suspect]
     Active Substance: GEMCITABINE\GEMCITABINE HYDROCHLORIDE
     Dosage: 800 MG/M2 ON DAYS 1 AND 8 EVERY 3 WEEKS FOR 6 CYCLES THEN EVERY 3 MONTHS FOR 6 CYCLES
     Route: 065
  6. MEDROXYPROGESTERONE [Concomitant]
     Active Substance: MEDROXYPROGESTERONE
     Indication: ENDOMETRIAL STROMAL SARCOMA
     Dosage: 600 MG/DAY
     Route: 065
  7. DOCETAXEL. [Suspect]
     Active Substance: DOCETAXEL
     Dosage: 60 MG/M2 ON DAY 8, EVERY 3 WEEKS FOR 6 CYCLES THEN EVERY 3 MONTHS FOR 6 CYCLES
     Route: 065
  8. ANASTROZOLE. [Concomitant]
     Active Substance: ANASTROZOLE
     Indication: ENDOMETRIAL STROMAL SARCOMA
     Dosage: 1 MG/DAY
     Route: 065
  9. CARBOPLATIN MYLAN [Suspect]
     Active Substance: CARBOPLATIN
     Indication: ENDOMETRIAL STROMAL SARCOMA
     Dosage: TARGET AUC 4
     Route: 041
  10. GEMCITABINE [Suspect]
     Active Substance: GEMCITABINE\GEMCITABINE HYDROCHLORIDE
     Indication: ENDOMETRIAL STROMAL SARCOMA
     Dosage: 800 MG/M2 ON DAYS 1 AND 8 EVERY 3 WEEKS
     Route: 065
  11. DOCETAXEL. [Suspect]
     Active Substance: DOCETAXEL
     Dosage: EVERY 3 WEEKS
     Route: 065
  12. GEMCITABINE [Suspect]
     Active Substance: GEMCITABINE\GEMCITABINE HYDROCHLORIDE
     Dosage: 800 MG/M2 ON DAYS 1 AND 8 EVERY 3 WEEKS FOR 6 CYCLES THEN EVERY 3 MONTHS FOR 6 CYCLES
     Route: 065
  13. DOCETAXEL. [Suspect]
     Active Substance: DOCETAXEL
     Dosage: EVERY 3 WEEKS
     Route: 065

REACTIONS (11)
  - Hypoaesthesia [Unknown]
  - Dyspnoea [Unknown]
  - Neutropenia [Unknown]
  - Ascites [Recovering/Resolving]
  - Condition aggravated [Recovering/Resolving]
  - Pulmonary haemorrhage [Recovered/Resolved]
  - Alopecia [Unknown]
  - Pleural effusion [Recovering/Resolving]
  - Intra-abdominal haemorrhage [Recovered/Resolved]
  - Shock [Unknown]
  - Bone marrow failure [Unknown]
